FAERS Safety Report 10211032 (Version 2)
Quarter: 2014Q2

REPORT INFORMATION
  Report Type: Spontaneous
  Country: JP (occurrence: JP)
  Receive Date: 20140602
  Receipt Date: 20140612
  Transmission Date: 20141212
  Serious: Yes (Death)
  Sender: FDA-Public Use
  Company Number: JP-NAPPMUNDI-GBR-2014-0018547

PATIENT
  Age: 81 Year
  Sex: Female

DRUGS (7)
  1. NORSPAN 5MG [Suspect]
     Indication: BACK PAIN
     Dosage: 5 MCG, Q1H
     Route: 062
     Dates: start: 20140331, end: 20140401
  2. EPERISONE HYDROCHLORIDE [Suspect]
     Indication: BACK PAIN
     Dosage: 150 MG, DAILY
     Route: 048
     Dates: start: 20140215, end: 20140330
  3. CELECOX [Suspect]
     Indication: BACK PAIN
     Dosage: 400 MG, DAILY
     Route: 048
     Dates: start: 20140215
  4. TERIPARATIDE ACETATE [Concomitant]
     Indication: OSTEOPOROSIS
     Dosage: 1 DF, WEEKLY
     Route: 042
     Dates: start: 20140215
  5. NOVAMIN                            /00013301/ [Concomitant]
     Indication: PROPHYLAXIS OF NAUSEA AND VOMITING
     Dosage: 15 MG, DAILY
     Route: 048
     Dates: start: 20140331
  6. MAGLAX [Concomitant]
     Indication: CONSTIPATION PROPHYLAXIS
     Dosage: 500 MG, DAILY
     Route: 048
     Dates: start: 20140331
  7. ELCITONIN [Concomitant]
     Indication: BACK PAIN

REACTIONS (1)
  - Cardiac failure [Fatal]
